FAERS Safety Report 17243830 (Version 1)
Quarter: 2020Q1

REPORT INFORMATION
  Report Type: Spontaneous
  Country: US (occurrence: US)
  Receive Date: 20200107
  Receipt Date: 20200107
  Transmission Date: 20200409
  Serious: Yes (Other)
  Sender: FDA-Public Use
  Company Number: US-ROCHE-2452667

PATIENT
  Sex: Female
  Weight: 35.87 kg

DRUGS (1)
  1. ACTIVASE [Suspect]
     Active Substance: ALTEPLASE
     Indication: THROMBECTOMY
     Dosage: 15 MG BOLUS, ONGOING: NO
     Route: 042
     Dates: start: 20191021

REACTIONS (3)
  - Anaphylactic reaction [Recovering/Resolving]
  - Off label use [Unknown]
  - Intentional product use issue [Unknown]

NARRATIVE: CASE EVENT DATE: 20191021
